FAERS Safety Report 9460894 (Version 4)
Quarter: 2013Q4

REPORT INFORMATION
  Report Type: Spontaneous
  Country: US (occurrence: US)
  Receive Date: 20130816
  Receipt Date: 20131008
  Transmission Date: 20140711
  Serious: No
  Sender: FDA-Public Use
  Company Number: US-009507513-1308USA006008

PATIENT
  Age: 49 Year
  Sex: Female
  Weight: 111.11 kg

DRUGS (10)
  1. VICTRELIS [Suspect]
     Indication: HEPATITIS C
     Dosage: 800 MG, (4 TABLETS) Q8H NOS
     Route: 048
     Dates: start: 20130614
  2. PEGASYS [Suspect]
     Dosage: UNK
  3. RIBASPHERE [Suspect]
     Dosage: UNK
  4. BENTYL [Concomitant]
  5. VALTREX [Concomitant]
  6. TYLENOL [Concomitant]
  7. EXCEDRIN MIGRAINE [Concomitant]
  8. KLONOPIN [Concomitant]
  9. SYNTHROID [Concomitant]
  10. NORCO [Concomitant]

REACTIONS (6)
  - Impaired work ability [Recovered/Resolved]
  - Ankle operation [Recovered/Resolved]
  - Fatigue [Recovered/Resolved]
  - Rash [Not Recovered/Not Resolved]
  - Insomnia [Not Recovered/Not Resolved]
  - Fall [Not Recovered/Not Resolved]
